FAERS Safety Report 9079329 (Version 1)
Quarter: 2013Q1

REPORT INFORMATION
  Report Type: Spontaneous
  Country: US (occurrence: US)
  Receive Date: 20130130
  Receipt Date: 20130130
  Transmission Date: 20140127
  Serious: No
  Sender: FDA-Public Use
  Company Number: US-ASTRAZENECA-2013SE04421

PATIENT
  Age: 50 Year
  Sex: Female

DRUGS (6)
  1. NEXIUM [Suspect]
     Indication: GASTROOESOPHAGEAL REFLUX DISEASE
     Route: 048
  2. NEXIUM [Suspect]
     Indication: GASTROOESOPHAGEAL REFLUX DISEASE
     Route: 048
  3. PRILOSEC OTC [Suspect]
     Indication: GASTROOESOPHAGEAL REFLUX DISEASE
     Route: 048
  4. HYDROCODONE [Concomitant]
  5. MOBIC [Concomitant]
  6. DILLEXANT [Concomitant]

REACTIONS (3)
  - Disease recurrence [Unknown]
  - Intentional drug misuse [Unknown]
  - Drug ineffective [Unknown]
